FAERS Safety Report 7067913-6 (Version None)
Quarter: 2010Q4

REPORT INFORMATION
  Report Type: 
  Country: None (occurrence: None)
  Receive Date: 20101028
  Receipt Date: 20101015
  Transmission Date: 20110411
  Serious: Yes (Hospitalization, Other)
  Sender: FDA-Public Use
  Company Number: US-ELI_LILLY_AND_COMPANY-US201010004158

PATIENT
  Sex: Male

DRUGS (5)
  1. CYMBALTA [Suspect]
     Indication: FIBROMYALGIA
     Dosage: 60 MG, DAILY (1/D)
  2. CYMBALTA [Suspect]
     Dosage: 60 MG, DAILY (1/D)
     Dates: start: 20100401, end: 20100601
  3. MINOCYCLINE HCL [Concomitant]
  4. LYRICA [Concomitant]
  5. NEURONTIN /USA/ [Concomitant]

REACTIONS (19)
  - ABNORMAL BEHAVIOUR [None]
  - BIPOLAR DISORDER [None]
  - BLOOD PRESSURE INCREASED [None]
  - CHOLELITHIASIS [None]
  - FEELING DRUNK [None]
  - HEART RATE INCREASED [None]
  - HEPATIC ENZYME INCREASED [None]
  - HEPATIC PAIN [None]
  - HYPOMANIA [None]
  - INTERVERTEBRAL DISC PROTRUSION [None]
  - MANIA [None]
  - MEMORY IMPAIRMENT [None]
  - NECK PAIN [None]
  - OCULAR HYPERAEMIA [None]
  - PAIN [None]
  - SPINAL DEFORMITY [None]
  - SUICIDAL IDEATION [None]
  - TREMOR [None]
  - YELLOW SKIN [None]
